FAERS Safety Report 7611926-X (Version None)
Quarter: 2011Q3

REPORT INFORMATION
  Report Type: 
  Country: None (occurrence: None)
  Receive Date: 20110715
  Receipt Date: 20110701
  Transmission Date: 20111222
  Serious: Yes (Other)
  Sender: FDA-Public Use
  Company Number: US-UCBSA-036153

PATIENT
  Sex: Female

DRUGS (7)
  1. ERGOCALCIFEROL [Concomitant]
  2. LORTAB [Concomitant]
  3. PREDNISONE [Suspect]
     Dosage: 40 MG, 30 MG AND LATER 20 MG PER DAY
  4. CIMZIA [Suspect]
     Indication: CROHN'S DISEASE
     Dates: start: 20090915
  5. ENTOCORT EC [Concomitant]
  6. PENTASA [Concomitant]
  7. SYNTHROID [Concomitant]

REACTIONS (4)
  - CHOLELITHIASIS [None]
  - DISEASE PROGRESSION [None]
  - HEPATIC STEATOSIS [None]
  - AFFECT LABILITY [None]
